FAERS Safety Report 9178009 (Version 1)
Quarter: 2013Q1

REPORT INFORMATION
  Report Type: Spontaneous
  Country: US (occurrence: None)
  Receive Date: 20130315
  Receipt Date: 20130315
  Transmission Date: 20140127
  Serious: Yes (Disabling)
  Sender: FDA-Public Use
  Company Number: B0874748A

PATIENT
  Age: 69 Year
  Sex: Female

DRUGS (2)
  1. ROPINIROLE HYDROCHLORIDE (FORMULATION UNKNOWN) (GENERIC) (ROPINIROLE HC1) [Suspect]
     Indication: RESTLESS LEGS SYNDROME
     Dosage: 5 MG / AT NIGHT / UNKNOWN?8 YEARS
  2. CLONAZEPAM [Concomitant]

REACTIONS (20)
  - Drug withdrawal syndrome [None]
  - Self-medication [None]
  - Impulse-control disorder [None]
  - Food craving [None]
  - Eating disorder [None]
  - Weight increased [None]
  - Anxiety [None]
  - Agitation [None]
  - Irritability [None]
  - Dysphoria [None]
  - Crying [None]
  - Fatigue [None]
  - Hyperhidrosis [None]
  - Tremor [None]
  - Obsessive-compulsive disorder [None]
  - Insomnia [None]
  - Periodic limb movement disorder [None]
  - Drug tolerance [None]
  - Restless legs syndrome [None]
  - Condition aggravated [None]
